FAERS Safety Report 9888094 (Version 1)
Quarter: 2014Q1

REPORT INFORMATION
  Report Type: Spontaneous
  Country: US (occurrence: US)
  Receive Date: 20140211
  Receipt Date: 20140211
  Transmission Date: 20141002
  Serious: Yes (Other)
  Sender: FDA-Public Use
  Company Number: US-ACTAVIS-2014-02102

PATIENT
  Age: 5 Month
  Sex: Female

DRUGS (5)
  1. CARBOPLATIN (WATSON LABORATORIES) [Suspect]
     Indication: RETINOBLASTOMA
     Dosage: 3 INJECTIONS, EACH 20 MG IN 2 ML (10 MG/ML)
  2. CARBOPLATIN (WATSON LABORATORIES) [Suspect]
     Dosage: UNKNOWN, 9 CYCLES
     Route: 042
  3. ETOPOSIDE (WATSON LABORATORIES) [Suspect]
     Indication: RETINOBLASTOMA
     Dosage: UNKNOWN, 9 CYCLES
     Route: 042
  4. VINCRISTINE (UNKNOWN) [Suspect]
     Indication: RETINOBLASTOMA
     Dosage: UNKNOWN, 9 CYCLES
     Route: 042
  5. CYCLOSPORINE (WATSON LABORATORIES) [Suspect]
     Indication: RETINOBLASTOMA
     Dosage: UNKNOWN, 9 CYCLES
     Route: 042

REACTIONS (3)
  - Arteriosclerotic retinopathy [Unknown]
  - Choroidal sclerosis [Unknown]
  - Vascular anomaly [Unknown]
